FAERS Safety Report 14673906 (Version 2)
Quarter: 2018Q2

REPORT INFORMATION
  Report Type: Spontaneous
  Country: US (occurrence: US)
  Receive Date: 20180323
  Receipt Date: 20180422
  Transmission Date: 20180711
  Serious: No
  Sender: FDA-Public Use
  Company Number: US-APOTEX-2017AP012923

PATIENT
  Age: 63 Year
  Sex: Female
  Weight: 50 kg

DRUGS (2)
  1. FLUOXETINE ORAL SOLUTION USP [Suspect]
     Active Substance: FLUOXETINE HYDROCHLORIDE
     Indication: PANIC ATTACK
     Dosage: 40 MG, QD
     Route: 065
     Dates: start: 201702, end: 201702
  2. BUSPAR [Suspect]
     Active Substance: BUSPIRONE HYDROCHLORIDE
     Indication: PANIC ATTACK
     Route: 065

REACTIONS (10)
  - Nerve injury [Unknown]
  - Blood magnesium decreased [Recovered/Resolved]
  - Tremor [Recovered/Resolved]
  - Rash [Recovering/Resolving]
  - Miliaria [Recovered/Resolved]
  - Nightmare [Recovering/Resolving]
  - Pruritus [Recovering/Resolving]
  - Injury [Unknown]
  - Feeling hot [Recovered/Resolved]
  - Burning sensation [Recovered/Resolved]

NARRATIVE: CASE EVENT DATE: 201701
